FAERS Safety Report 4603106-7 (Version None)
Quarter: 2005Q1

REPORT INFORMATION
  Report Type: 
  Country: None (occurrence: None)
  Receive Date: 20050309
  Receipt Date: 20041018
  Transmission Date: 20050727
  Serious: Yes (Disabling)
  Sender: FDA-Public Use
  Company Number: US-GLAXOSMITHKLINE-A0531090A

PATIENT
  Age: 81 Year
  Sex: Male

DRUGS (1)
  1. DEBROX DROPS [Suspect]
     Indication: SINUS DISORDER
     Route: 001
     Dates: start: 19980201

REACTIONS (3)
  - DEAFNESS [None]
  - INSOMNIA [None]
  - LOSS OF CONSCIOUSNESS [None]
